FAERS Safety Report 25000534 (Version 1)
Quarter: 2025Q1

REPORT INFORMATION
  Report Type: Spontaneous
  Country: US (occurrence: US)
  Receive Date: 20250222
  Receipt Date: 20250222
  Transmission Date: 20250409
  Serious: Yes (Hospitalization)
  Sender: ALEXION PHARMACEUTICALS
  Company Number: US-AstraZeneca-CH-00810046A

PATIENT
  Age: 70 Year
  Weight: 60.771 kg

DRUGS (1)
  1. LYNPARZA [Suspect]
     Active Substance: OLAPARIB
     Indication: Peritoneal mesothelioma malignant
     Dosage: 200 MILLIGRAM, BID

REACTIONS (1)
  - Anaemia [Recovering/Resolving]
